FAERS Safety Report 5061818-8 (Version None)
Quarter: 2006Q3

REPORT INFORMATION
  Report Type: 
  Country: None (occurrence: None)
  Receive Date: 20060720
  Receipt Date: 20060720
  Transmission Date: 20061208
  Serious: Yes (Hospitalization)
  Sender: FDA-Public Use
  Company Number: None

PATIENT
  Age: 65 Year
  Sex: Male
  Weight: 109.3 kg

DRUGS (15)
  1. DICLOFENAC [Suspect]
     Indication: PAIN
     Dosage: 75 MG BID
     Dates: start: 20060530, end: 20060618
  2. DOCUSATE CA [Concomitant]
  3. LORAZEPAM [Concomitant]
  4. ACCU-CHEK COMFORT CV (GLUCOSE) TEST STRIP [Concomitant]
  5. HUMULIN N [Concomitant]
  6. HUMULIN R [Concomitant]
  7. TACROLIMUS [Concomitant]
  8. INSULIN SYRG [Concomitant]
  9. BOOST DIABETIC LIQUID VANILLA [Concomitant]
  10. ACTAMINOPHEN [Concomitant]
  11. LISINOPRIL [Concomitant]
  12. FLUDROCORTISONE ACETATE [Concomitant]
  13. ASPIRIN [Concomitant]
  14. NITROGLYCERIN [Concomitant]
  15. HYDROXYZINE HCL [Concomitant]

REACTIONS (1)
  - GASTROINTESTINAL HAEMORRHAGE [None]
